FAERS Safety Report 16943699 (Version 4)
Quarter: 2020Q1

REPORT INFORMATION
  Report Type: Report from Study
  Country: CA (occurrence: CA)
  Receive Date: 20191022
  Receipt Date: 20200320
  Transmission Date: 20200409
  Serious: Yes (Other)
  Sender: FDA-Public Use
  Company Number: CA-AMGEN-CANNI2019174591

PATIENT
  Age: 55 Year
  Sex: Female

DRUGS (1)
  1. AIMOVIG [Suspect]
     Active Substance: ERENUMAB-AOOE
     Indication: MIGRAINE
     Dosage: 140 MILLIGRAM, QMO
     Route: 058
     Dates: start: 20190918

REACTIONS (4)
  - Lupus pneumonitis [Unknown]
  - Constipation [Unknown]
  - Migraine [Unknown]
  - Pneumonia [Unknown]

NARRATIVE: CASE EVENT DATE: 20190925
